FAERS Safety Report 7434205-2 (Version None)
Quarter: 2011Q2

REPORT INFORMATION
  Report Type: 
  Country: None (occurrence: None)
  Receive Date: 20110425
  Receipt Date: 20110401
  Transmission Date: 20111010
  Serious: Yes (Hospitalization, Other)
  Sender: FDA-Public Use
  Company Number: US-BAYER-200940422NA

PATIENT
  Age: 38 Year
  Sex: Male
  Weight: 77.098 kg

DRUGS (6)
  1. DOPAMINE [Concomitant]
     Dosage: UNK
     Route: 042
     Dates: start: 20010914
  2. TRASYLOL [Suspect]
     Indication: CORONARY ARTERY BYPASS
     Route: 042
     Dates: start: 20010914
  3. NOREPINEPHRINE BITARTRATE [Concomitant]
     Dosage: UNK
     Dates: start: 20010914
  4. INSULIN [Concomitant]
     Dosage: UNK
  5. ZOLOFT [Concomitant]
  6. MORPHINE [Concomitant]
     Route: 042

REACTIONS (12)
  - ANXIETY [None]
  - DEPRESSION [None]
  - EMOTIONAL DISTRESS [None]
  - UNEVALUABLE EVENT [None]
  - RENAL FAILURE [None]
  - ANHEDONIA [None]
  - RENAL IMPAIRMENT [None]
  - RENAL INJURY [None]
  - FEAR [None]
  - PAIN [None]
  - INJURY [None]
  - STRESS [None]
